FAERS Safety Report 13454847 (Version 6)
Quarter: 2018Q3

REPORT INFORMATION
  Report Type: Report from Study
  Country: US (occurrence: US)
  Receive Date: 20170418
  Receipt Date: 20180921
  Transmission Date: 20181010
  Serious: Yes (Hospitalization, Other)
  Sender: FDA-Public Use
  Company Number: US-JNJFOC-20151108594

PATIENT
  Age: 64 Year
  Sex: Male
  Weight: 100 kg

DRUGS (12)
  1. IMBRUVICA [Suspect]
     Active Substance: IBRUTINIB
     Indication: WALDENSTROM^S MACROGLOBULINAEMIA
     Route: 048
     Dates: start: 20151103
  2. IMBRUVICA [Suspect]
     Active Substance: IBRUTINIB
     Indication: WALDENSTROM^S MACROGLOBULINAEMIA
     Route: 048
     Dates: start: 20151105
  3. IMBRUVICA [Suspect]
     Active Substance: IBRUTINIB
     Indication: WALDENSTROM^S MACROGLOBULINAEMIA
     Route: 048
     Dates: start: 20161202
  4. KLONOPIN [Concomitant]
     Active Substance: CLONAZEPAM
  5. LOPRESSOR [Concomitant]
     Active Substance: METOPROLOL TARTRATE
  6. IMBRUVICA [Suspect]
     Active Substance: IBRUTINIB
     Indication: WALDENSTROM^S MACROGLOBULINAEMIA
     Route: 048
     Dates: start: 201508
  7. IMBRUVICA [Suspect]
     Active Substance: IBRUTINIB
     Indication: WALDENSTROM^S MACROGLOBULINAEMIA
     Route: 048
     Dates: start: 20150925
  8. IMBRUVICA [Suspect]
     Active Substance: IBRUTINIB
     Indication: WALDENSTROM^S MACROGLOBULINAEMIA
     Route: 048
  9. IMBRUVICA [Suspect]
     Active Substance: IBRUTINIB
     Indication: WALDENSTROM^S MACROGLOBULINAEMIA
     Route: 048
     Dates: start: 20150924
  10. IMBRUVICA [Suspect]
     Active Substance: IBRUTINIB
     Indication: WALDENSTROM^S MACROGLOBULINAEMIA
     Route: 048
     Dates: start: 20150929, end: 201704
  11. DOXYCYCLINE. [Concomitant]
     Active Substance: DOXYCYCLINE
  12. BIFIDOBACTERIUM LACTIS [Concomitant]
     Active Substance: BIFIDOBACTERIUM ANIMALIS LACTIS

REACTIONS (49)
  - Neuropathy peripheral [Unknown]
  - Memory impairment [Unknown]
  - Skin warm [Unknown]
  - Peripheral swelling [Unknown]
  - Haemorrhage [Unknown]
  - Hernia [Unknown]
  - Laceration [Unknown]
  - Nodule [Unknown]
  - Retinal tear [Unknown]
  - Feeling abnormal [Unknown]
  - Joint warmth [Unknown]
  - Hypoaesthesia [Unknown]
  - Rash pruritic [Unknown]
  - Contusion [Unknown]
  - Platelet count decreased [Unknown]
  - Nausea [Unknown]
  - Bone pain [Not Recovered/Not Resolved]
  - Pain in extremity [Unknown]
  - Dyspepsia [Unknown]
  - Post procedural contusion [Unknown]
  - Spinal disorder [Recovered/Resolved]
  - Tinnitus [Unknown]
  - Flank pain [Unknown]
  - Gastrointestinal disorder [Unknown]
  - Dry throat [Unknown]
  - Bladder pain [Unknown]
  - Arthralgia [Not Recovered/Not Resolved]
  - Fatigue [Unknown]
  - Epistaxis [Unknown]
  - Chills [Unknown]
  - Haemoptysis [Unknown]
  - Squamous cell carcinoma [Unknown]
  - Headache [Unknown]
  - Myalgia [Unknown]
  - Pyrexia [Unknown]
  - Clostridium difficile infection [Unknown]
  - Insomnia [Unknown]
  - Amnesia [Unknown]
  - Slow response to stimuli [Unknown]
  - Abdominal distension [Unknown]
  - Dry mouth [Unknown]
  - Acute sinusitis [Unknown]
  - Rash maculo-papular [Unknown]
  - Feeling hot [Unknown]
  - Tendon pain [Unknown]
  - Muscle spasms [Unknown]
  - Malaise [Unknown]
  - Pruritus [Unknown]
  - Back pain [Unknown]

NARRATIVE: CASE EVENT DATE: 2015
